FAERS Safety Report 7598075-4 (Version None)
Quarter: 2011Q3

REPORT INFORMATION
  Report Type: 
  Country: None (occurrence: None)
  Receive Date: 20110708
  Receipt Date: 20110623
  Transmission Date: 20111222
  Serious: No
  Sender: FDA-Public Use
  Company Number: US-B.I. PHARMACEUTICALS,INC./RIDGEFIELD-2011-BP-13255BP

PATIENT
  Sex: Female

DRUGS (4)
  1. HYDROCHLOROTHIAZIDE [Concomitant]
     Dosage: 50 MG
     Route: 048
     Dates: start: 20010320
  2. NIASPAN [Concomitant]
     Dosage: 1000 MG
     Route: 048
     Dates: start: 20011201
  3. PRADAXA [Suspect]
     Dosage: 300 MG
     Dates: start: 20110401, end: 20110421
  4. AMIODARONE HCL [Concomitant]
     Dosage: 200 MG
     Route: 048
     Dates: start: 20110512

REACTIONS (2)
  - LIVER FUNCTION TEST ABNORMAL [None]
  - HEPATITIS [None]
